FAERS Safety Report 5713972-X (Version None)
Quarter: 2008Q2

REPORT INFORMATION
  Report Type: 
  Country: None (occurrence: None)
  Receive Date: 20080422
  Receipt Date: 20080422
  Transmission Date: 20081010
  Serious: Yes (Hospitalization)
  Sender: FDA-Public Use
  Company Number: None

PATIENT
  Sex: Male
  Weight: 89 kg

DRUGS (5)
  1. TEMOZOLOMIDE [Suspect]
     Dosage: 2880 MG
  2. AMLODIPINE [Concomitant]
  3. ENALAPRIL [Concomitant]
  4. DEXAMETHASONE [Concomitant]
  5. GRANISETRON HCL [Concomitant]

REACTIONS (4)
  - ABDOMINAL PAIN UPPER [None]
  - CHOLECYSTITIS [None]
  - NAUSEA [None]
  - RETCHING [None]
